FAERS Safety Report 25986369 (Version 2)
Quarter: 2025Q4

REPORT INFORMATION
  Report Type: Spontaneous
  Country: US (occurrence: US)
  Receive Date: 20251031
  Receipt Date: 20251110
  Transmission Date: 20260117
  Serious: No
  Sender: GLAXOSMITHKLINE
  Company Number: US-GSK-US2025AMR127625

PATIENT
  Sex: Female

DRUGS (1)
  1. ALBUTEROL SULFATE [Suspect]
     Active Substance: ALBUTEROL SULFATE
     Indication: Product used for unknown indication
     Dosage: UNK( 90 MCG, 18G/200 METERED)

REACTIONS (4)
  - Wrong technique in device usage process [Unknown]
  - Product dose omission issue [Unknown]
  - Drug effect less than expected [Unknown]
  - Product complaint [Unknown]
